FAERS Safety Report 6428202-3 (Version None)
Quarter: 2009Q4

REPORT INFORMATION
  Report Type: 
  Country: None (occurrence: None)
  Receive Date: 20091105
  Receipt Date: 20091027
  Transmission Date: 20100525
  Serious: Yes (Other)
  Sender: FDA-Public Use
  Company Number: GB-SANOFI-SYNTHELABO-A01200910492

PATIENT
  Sex: Female

DRUGS (6)
  1. PREDNISOLONE [Concomitant]
     Indication: SYSTEMIC LUPUS ERYTHEMATOSUS
     Dosage: UNK
     Route: 065
  2. QUININE [Concomitant]
     Indication: DRUG USE FOR UNKNOWN INDICATION
     Dosage: UNK
     Route: 065
  3. LEVOTHYROXINE SODIUM [Concomitant]
     Indication: DRUG USE FOR UNKNOWN INDICATION
     Dosage: UNK
     Route: 065
  4. LANSOPRAZOLE [Concomitant]
     Indication: DRUG USE FOR UNKNOWN INDICATION
     Dosage: UNK
     Route: 065
  5. PLAQUENIL [Suspect]
     Indication: SYSTEMIC LUPUS ERYTHEMATOSUS
     Route: 048
     Dates: start: 19840701
  6. PLAQUENIL [Suspect]
     Route: 048
     Dates: end: 20091009

REACTIONS (22)
  - BLINDNESS [None]
  - BURNING SENSATION [None]
  - CHILLS [None]
  - CHOKING SENSATION [None]
  - CONFUSIONAL STATE [None]
  - DISORIENTATION [None]
  - DYSGEUSIA [None]
  - DYSPNOEA [None]
  - FEELING ABNORMAL [None]
  - HEADACHE [None]
  - INSOMNIA [None]
  - LACRIMATION INCREASED [None]
  - NASOPHARYNGITIS [None]
  - NAUSEA [None]
  - PAIN [None]
  - PARAESTHESIA [None]
  - PHOTOPHOBIA [None]
  - PRODUCT QUALITY ISSUE [None]
  - SKIN TIGHTNESS [None]
  - THROAT IRRITATION [None]
  - THROAT TIGHTNESS [None]
  - VISION BLURRED [None]
